FAERS Safety Report 23182075 (Version 1)
Quarter: 2023Q4

REPORT INFORMATION
  Report Type: Spontaneous
  Country: US (occurrence: US)
  Receive Date: 20231114
  Receipt Date: 20231114
  Transmission Date: 20240109
  Serious: No
  Sender: FDA-Public Use
  Company Number: US-PURDUE PHARMA-USA-2022-0298341

PATIENT
  Sex: Female

DRUGS (1)
  1. MORPHINE SULFATE [Suspect]
     Active Substance: MORPHINE SULFATE
     Indication: Pain
     Dosage: UNK
     Route: 065

REACTIONS (1)
  - Constipation [Unknown]
